FAERS Safety Report 8303660-8 (Version None)
Quarter: 2012Q2

REPORT INFORMATION
  Report Type: 
  Country: None (occurrence: None)
  Receive Date: 20120423
  Receipt Date: 20120417
  Transmission Date: 20120825
  Serious: Yes (Other)
  Sender: FDA-Public Use
  Company Number: JP-PFIZER INC-2012094394

PATIENT
  Sex: Male

DRUGS (5)
  1. NESINA [Concomitant]
     Route: 048
  2. NORVASC [Suspect]
     Dosage: UNK
     Route: 048
  3. CELECTOL [Concomitant]
     Dosage: UNK
     Route: 048
  4. LOSARTAN POTASSIUM AND HYDROCHLOROTHIAZIDE [Concomitant]
     Dosage: UNK
     Route: 048
  5. METFORMIN HCL [Concomitant]
     Dosage: UNK
     Route: 048

REACTIONS (1)
  - BLOOD CREATINE PHOSPHOKINASE INCREASED [None]
